FAERS Safety Report 14819284 (Version 1)
Quarter: 2018Q2

REPORT INFORMATION
  Report Type: Report from Study
  Country: US (occurrence: US)
  Receive Date: 20180427
  Receipt Date: 20180427
  Transmission Date: 20180711
  Serious: Yes (Other)
  Sender: FDA-Public Use
  Company Number: US-BAYER-2018-077808

PATIENT
  Age: 55 Year
  Sex: Female
  Weight: 85.35 kg

DRUGS (2)
  1. LETAIRIS [Concomitant]
     Active Substance: AMBRISENTAN
  2. ADEMPAS [Suspect]
     Active Substance: RIOCIGUAT
     Indication: PULMONARY ARTERIAL HYPERTENSION
     Dosage: 0.5 MG, TID
     Route: 048
     Dates: start: 20180329, end: 201804

REACTIONS (5)
  - Drug ineffective [Unknown]
  - Right ventricular failure [None]
  - Dyspnoea [Unknown]
  - Dyspepsia [Unknown]
  - Interstitial lung disease [Unknown]
